FAERS Safety Report 14054461 (Version 8)
Quarter: 2018Q2

REPORT INFORMATION
  Report Type: Report from Study
  Country: JP (occurrence: JP)
  Receive Date: 20171006
  Receipt Date: 20180419
  Transmission Date: 20180711
  Serious: Yes (Hospitalization)
  Sender: FDA-Public Use
  Company Number: JP-ARIAD PHARMACEUTICALS, INC-2017JP009017

PATIENT
  Age: 70 Year
  Sex: Female
  Weight: 54.7 kg

DRUGS (23)
  1. PONATINIB [Suspect]
     Active Substance: PONATINIB
     Indication: CHRONIC MYELOID LEUKAEMIA
     Dosage: 45 MG, QD
     Route: 048
     Dates: start: 20130806, end: 20130829
  2. PONATINIB [Suspect]
     Active Substance: PONATINIB
     Dosage: 45 MG, QD
     Route: 048
     Dates: start: 20130901, end: 20130927
  3. PONATINIB [Suspect]
     Active Substance: PONATINIB
     Dosage: 45 MG, QD
     Route: 048
     Dates: start: 20130929, end: 20131017
  4. PONATINIB [Suspect]
     Active Substance: PONATINIB
     Dosage: 15 MG, QD
     Route: 048
     Dates: start: 20171119, end: 20180312
  5. HYALURONATE SODIUM [Concomitant]
     Active Substance: HYALURONATE SODIUM
     Indication: CONJUNCTIVITIS ALLERGIC
     Dosage: UNK
     Route: 065
  6. RESTAMIN                           /00000401/ [Concomitant]
     Active Substance: DIPHENHYDRAMINE
     Indication: RASH GENERALISED
  7. MAGNESIUM OXIDE. [Concomitant]
     Active Substance: MAGNESIUM OXIDE
     Indication: CONSTIPATION
     Dosage: 990 MG, QD
     Route: 048
     Dates: start: 20170417
  8. MUCOSTA [Concomitant]
     Active Substance: REBAMIPIDE
     Indication: GASTRIC MUCOSAL LESION
     Dosage: UNK, QD
     Route: 048
     Dates: start: 20140812
  9. HEPARINOID [Concomitant]
     Active Substance: CHONDROITIN SULFATE (BOVINE)
     Indication: RASH
     Dosage: UNK
     Route: 061
     Dates: start: 20130806
  10. PONATINIB [Suspect]
     Active Substance: PONATINIB
     Dosage: 30 MG, QD
     Route: 048
     Dates: start: 20131218, end: 20131220
  11. PONATINIB [Suspect]
     Active Substance: PONATINIB
     Dosage: UNK
     Route: 048
     Dates: start: 20180313
  12. LOXOPROFEN SODIUM [Concomitant]
     Active Substance: LOXOPROFEN SODIUM
     Indication: BONE PAIN
     Dosage: 60 MG, QD
     Route: 065
     Dates: start: 20140812
  13. RESTAMIN                           /00000401/ [Concomitant]
     Active Substance: DIPHENHYDRAMINE
     Indication: RASH
     Dosage: UNK
     Route: 061
     Dates: start: 20160801
  14. YODEL [Concomitant]
     Active Substance: SENNA LEAF
     Indication: CONSTIPATION
     Dosage: 160 MG, QD
     Route: 048
     Dates: start: 20170928
  15. ZOLPIDEM TARTRATE. [Concomitant]
     Active Substance: ZOLPIDEM TARTRATE
     Indication: INSOMNIA
     Dosage: 10 MG, QD
     Route: 065
     Dates: start: 20170928
  16. PONATINIB [Suspect]
     Active Substance: PONATINIB
     Dosage: 30 MG, QD
     Route: 048
     Dates: start: 20131018, end: 20131213
  17. SENNOSIDE A+B [Concomitant]
     Active Substance: SENNOSIDES A AND B
     Dosage: 24 MG, QD
     Route: 048
  18. TEPRENONE [Concomitant]
     Active Substance: TEPRENONE
     Indication: GASTRIC MUCOSAL LESION
     Dosage: UNK
     Route: 065
  19. SENNOSIDE A+B [Concomitant]
     Active Substance: SENNOSIDES A AND B
     Indication: CONSTIPATION
     Dosage: UNK
     Route: 065
  20. SENNOSIDE A+B [Concomitant]
     Active Substance: SENNOSIDES A AND B
     Dosage: 12 MG, UNK
     Route: 065
  21. HEPARINOID [Concomitant]
     Active Substance: CHONDROITIN SULFATE (BOVINE)
     Indication: RASH GENERALISED
  22. PONATINIB [Suspect]
     Active Substance: PONATINIB
     Dosage: 15 MG, QD
     Route: 048
     Dates: start: 20131214, end: 20131217
  23. PONATINIB [Suspect]
     Active Substance: PONATINIB
     Dosage: 15 MG, QD
     Route: 048
     Dates: start: 20131221, end: 20171113

REACTIONS (16)
  - Pyrexia [Recovered/Resolved]
  - Fatigue [Not Recovered/Not Resolved]
  - Dry eye [Not Recovered/Not Resolved]
  - Bone pain [Not Recovered/Not Resolved]
  - Cataract [Not Recovered/Not Resolved]
  - Back pain [Recovered/Resolved]
  - Cholelithiasis [Recovered/Resolved]
  - Carotid artery stenosis [Not Recovered/Not Resolved]
  - Cholecystitis [Recovered/Resolved]
  - Eye pain [Not Recovered/Not Resolved]
  - Neuralgia [Not Recovered/Not Resolved]
  - Headache [Not Recovered/Not Resolved]
  - Thrombocytopenia [Not Recovered/Not Resolved]
  - Rash generalised [Not Recovered/Not Resolved]
  - Contusion [Recovered/Resolved]
  - Gingival pain [Recovered/Resolved]

NARRATIVE: CASE EVENT DATE: 20130806
